FAERS Safety Report 4707596-0 (Version None)
Quarter: 2005Q3

REPORT INFORMATION
  Report Type: 
  Country: None (occurrence: None)
  Receive Date: 20050705
  Receipt Date: 20050617
  Transmission Date: 20060218
  Serious: Yes (Death)
  Sender: FDA-Public Use
  Company Number: 11653

PATIENT

DRUGS (4)
  1. CARBOPLATIN [Suspect]
     Indication: NON-SMALL CELL LUNG CANCER STAGE III
     Dosage: 2MG/M2 WEEKLY
  2. CARBOPLATIN [Suspect]
     Indication: NON-SMALL CELL LUNG CANCER STAGE III
     Dosage: 6 AUG OTH
  3. PACLITAXEL [Suspect]
     Indication: NON-SMALL CELL LUNG CANCER STAGE III
     Dosage: 50MG/M2 WEEKLY
  4. PACLITAXEL [Suspect]
     Indication: NON-SMALL CELL LUNG CANCER STAGE III
     Dosage: 100MG/M2 OTH

REACTIONS (1)
  - TRACHEO-OESOPHAGEAL FISTULA [None]
